FAERS Safety Report 4790793-6 (Version None)
Quarter: 2005Q3

REPORT INFORMATION
  Report Type: 
  Country: None (occurrence: None)
  Receive Date: 20050914
  Receipt Date: 20040803
  Transmission Date: 20060218
  Serious: Yes (Death)
  Sender: FDA-Public Use
  Company Number: 062-20785-04080143

PATIENT
  Age: 61 Year
  Sex: Male

DRUGS (3)
  1. THALOMID [Suspect]
     Indication: PLASMACYTOSIS
     Dosage: ORAL
     Route: 048
     Dates: end: 20040801
  2. MOVICOL (NULYTELY) [Concomitant]
  3. ANALGESIC PLASTER (PLASTERS) [Concomitant]

REACTIONS (2)
  - DEATH [None]
  - DISEASE PROGRESSION [None]
